FAERS Safety Report 8492507-5 (Version None)
Quarter: 2012Q3

REPORT INFORMATION
  Report Type: 
  Country: None (occurrence: None)
  Receive Date: 20120706
  Receipt Date: 20120702
  Transmission Date: 20120928
  Serious: No
  Sender: FDA-Public Use
  Company Number: US-PFIZER INC-2012131375

PATIENT
  Sex: Male

DRUGS (4)
  1. LYRICA [Suspect]
     Indication: SCIATICA
     Dosage: 25 MG, 2X/DAY
  2. OMEPRAZOLE [Concomitant]
     Dosage: 40 MG, UNK
  3. LYRICA [Suspect]
     Dosage: 50 MG, QHS
     Route: 048
     Dates: start: 20111001, end: 20120401
  4. HYDROCODONE [Concomitant]
     Dosage: 5/ 5W RARE

REACTIONS (1)
  - HEADACHE [None]
